FAERS Safety Report 10249581 (Version 1)
Quarter: 2014Q2

REPORT INFORMATION
  Report Type: Spontaneous
  Country: US (occurrence: None)
  Receive Date: 20140619
  Receipt Date: 20140619
  Transmission Date: 20141212
  Serious: Yes (Life-Threatening, Hospitalization)
  Sender: FDA-Public Use
  Company Number: None

PATIENT
  Age: 60 Year
  Sex: Male
  Weight: 56.5 kg

DRUGS (1)
  1. KETOROLAC TROMETHAMINE [Suspect]
     Indication: PAIN
     Route: 042
     Dates: start: 20140614, end: 20140614

REACTIONS (4)
  - Anaphylactic reaction [None]
  - Rash [None]
  - Tachypnoea [None]
  - Hypotension [None]
